FAERS Safety Report 10965683 (Version 1)
Quarter: 2015Q1

REPORT INFORMATION
  Report Type: Spontaneous
  Country: US (occurrence: None)
  Receive Date: 20150327
  Receipt Date: 20150327
  Transmission Date: 20150721
  Serious: Yes (Disabling)
  Sender: FDA-Public Use
  Company Number: None

PATIENT
  Age: 63 Year
  Sex: Female
  Weight: 99.79 kg

DRUGS (2)
  1. LEVOFLOXACIN. [Suspect]
     Active Substance: LEVOFLOXACIN
     Indication: CELLULITIS
     Dosage: 1 PILL
     Route: 048
     Dates: start: 20140324, end: 20140329
  2. ZIOPTAN [Concomitant]
     Active Substance: TAFLUPROST

REACTIONS (11)
  - Pain in extremity [None]
  - Hyperreflexia [None]
  - Tinnitus [None]
  - Loss of control of legs [None]
  - Feeling abnormal [None]
  - Hypergammaglobulinaemia benign monoclonal [None]
  - Headache [None]
  - Peripheral sensorimotor neuropathy [None]
  - Burning sensation [None]
  - Disturbance in attention [None]
  - Gait disturbance [None]

NARRATIVE: CASE EVENT DATE: 20140329
